FAERS Safety Report 24379064 (Version 4)
Quarter: 2024Q4

REPORT INFORMATION
  Report Type: Spontaneous
  Country: DE (occurrence: DE)
  Receive Date: 20240930
  Receipt Date: 20241213
  Transmission Date: 20250115
  Serious: No
  Sender: PFIZER
  Company Number: DE-PFIZER INC-202400261617

PATIENT
  Sex: Female

DRUGS (1)
  1. MEDROXYPROGESTERONE [Suspect]
     Active Substance: MEDROXYPROGESTERONE
     Dosage: UNK

REACTIONS (4)
  - Incorrect dose administered [Unknown]
  - Device leakage [Unknown]
  - Device ineffective [Unknown]
  - Device difficult to use [Unknown]
